FAERS Safety Report 4366875-X (Version None)
Quarter: 2004Q2

REPORT INFORMATION
  Report Type: 
  Country: None (occurrence: None)
  Receive Date: 20040524
  Receipt Date: 20040512
  Transmission Date: 20050107
  Serious: Yes (Hospitalization)
  Sender: FDA-Public Use
  Company Number: 200403060

PATIENT
  Age: 79 Year
  Sex: Female

DRUGS (4)
  1. MOTRIN IB [Suspect]
     Indication: ARTHRITIS
     Dosage: PRN
     Dates: start: 20040208, end: 20040218
  2. EXTRA STRENGTH TYLENOL PRODUCT (ACETAMINOPHEN) [Concomitant]
  3. BUFFERIN (BUFFERED ASPIRIN) [Concomitant]
  4. CELEBREX [Concomitant]

REACTIONS (1)
  - CELLULITIS [None]
